FAERS Safety Report 9532030 (Version 3)
Quarter: 2013Q4

REPORT INFORMATION
  Report Type: Spontaneous
  Country: GB (occurrence: GB)
  Receive Date: 20130918
  Receipt Date: 20131107
  Transmission Date: 20140711
  Serious: No
  Sender: FDA-Public Use
  Company Number: GB-B.I. PHARMACEUTICALS,INC./RIDGEFIELD-2013-BI-28352UK

PATIENT
  Age: 73 Year
  Sex: Male
  Weight: 93 kg

DRUGS (2)
  1. TRAJENTA [Suspect]
     Dosage: 5 MG
     Route: 048
     Dates: start: 20130829, end: 20130830
  2. MULTIPLE MEDICATIONS - NOT SPECIFIED [Concomitant]

REACTIONS (1)
  - Oedema mouth [Recovered/Resolved]
